FAERS Safety Report 23345929 (Version 1)
Quarter: 2023Q4

REPORT INFORMATION
  Report Type: Spontaneous
  Country: US (occurrence: None)
  Receive Date: 20231227
  Receipt Date: 20231227
  Transmission Date: 20240110
  Serious: Yes (Other)
  Sender: FDA-Public Use
  Company Number: None

PATIENT
  Age: 71 Year
  Sex: Female

DRUGS (1)
  1. DUPIXENT [Suspect]
     Active Substance: DUPILUMAB
     Dates: start: 20231212, end: 20231227

REACTIONS (5)
  - Eyelid irritation [None]
  - Vision blurred [None]
  - Chest pain [None]
  - Dry skin [None]
  - Skin mass [None]

NARRATIVE: CASE EVENT DATE: 20231227
